FAERS Safety Report 13780847 (Version 2)
Quarter: 2017Q3

REPORT INFORMATION
  Report Type: Spontaneous
  Country: ES (occurrence: ES)
  Receive Date: 20170724
  Receipt Date: 20170726
  Transmission Date: 20171127
  Serious: Yes (Other)
  Sender: FDA-Public Use
  Company Number: ES-ACCORD-056151

PATIENT
  Age: 73 Year
  Sex: Female
  Weight: 72 kg

DRUGS (10)
  1. CARBOPLATIN ACCORD HEALTHCARE [Suspect]
     Active Substance: CARBOPLATIN
     Indication: OVARIAN CANCER
     Dosage: STRENGTH: 10 MG/ML, CARBOPLATIN AUC 5 EVERY 4 WEEKS, 2ND ADMINISTRATION
     Route: 042
     Dates: start: 20170530, end: 2017
  2. VALDOXAN [Concomitant]
     Active Substance: AGOMELATINE
     Route: 048
     Dates: start: 20150616
  3. AERO RED URIACH AQUILEA OTC, S.L. [Concomitant]
     Dosage: 3 TIMES A DAY
     Dates: start: 20150827
  4. DOMPERIDONA GAMIR MEDA PHARMA S.L. [Concomitant]
     Dosage: 1 CAPSULE EVERY 8 HOURS
     Dates: start: 20151106
  5. PARAFLUDETEN LABORATORIOS ALTER, S.A. [Concomitant]
     Route: 048
     Dates: start: 20170622
  6. PARIET JANSSEN-CILAG, S.A. [Concomitant]
     Dosage: 1 TABLET EVERY 24 HOURS
     Dates: start: 20151126
  7. LORAZEPAM. [Concomitant]
     Active Substance: LORAZEPAM
     Dosage: 2 TABLETS EVERY 24 HOURS
     Route: 048
     Dates: start: 20150813
  8. ANTABUS BOHM, S.A. [Concomitant]
     Dosage: 1 TABLET EVERY 24 HOURS
     Route: 048
     Dates: start: 20150910
  9. PRISTIQ PFIZER GEP S.L. [Concomitant]
     Dosage: 1 TABLET EVERY 24 HOURS
     Route: 048
     Dates: start: 20151126
  10. OMEPRAZOL CINFA [Concomitant]
     Dosage: 1 CAPSULE EVERY 24 HOURS
     Route: 048
     Dates: start: 20170419

REACTIONS (5)
  - Dizziness [Recovered/Resolved]
  - Pruritus [Recovered/Resolved]
  - Erythema [Recovered/Resolved]
  - Malaise [Recovered/Resolved]
  - Abdominal pain upper [Recovered/Resolved]

NARRATIVE: CASE EVENT DATE: 20170530
